FAERS Safety Report 16149477 (Version 2)
Quarter: 2019Q2

REPORT INFORMATION
  Report Type: Report from Study
  Country: JP (occurrence: JP)
  Receive Date: 20190402
  Receipt Date: 20190409
  Transmission Date: 20190711
  Serious: Yes (Hospitalization)
  Sender: FDA-Public Use
  Company Number: JP-PFIZER INC-2019137050

PATIENT
  Age: 16 Year
  Sex: Male
  Weight: 44 kg

DRUGS (11)
  1. GASCON [Concomitant]
     Active Substance: DIMETHICONE
     Indication: GASTRITIS PROPHYLAXIS
     Dosage: 120 MG, 3X/DAY
     Route: 048
  2. LOXOPROFEN SODIUM HYDRATE [Concomitant]
     Active Substance: LOXOPROFEN SODIUM DIHYDRATE
     Indication: ANALGESIC THERAPY
     Dosage: UNK
     Route: 048
  3. OLOPATADINE HYDROCHLORIDE. [Concomitant]
     Active Substance: OLOPATADINE HYDROCHLORIDE
     Indication: RHINITIS ALLERGIC
     Dosage: UNK
  4. DALACIN T [Concomitant]
     Active Substance: CLINDAMYCIN PHOSPHATE
     Indication: ACNE
     Dosage: UNK
     Route: 062
     Dates: start: 20180912
  5. LAMISIL [Concomitant]
     Active Substance: TERBINAFINE HYDROCHLORIDE
     Indication: ACNE
     Dosage: UNK
     Route: 062
     Dates: start: 20181102
  6. EPPIKAJUTSUTO [Concomitant]
     Indication: ECZEMA
     Dosage: 2.5 G, 1X/DAY
     Route: 048
  7. LYRICA [Concomitant]
     Active Substance: PREGABALIN
     Indication: ANALGESIC THERAPY
     Dosage: 150 MG, 2X/DAY
     Route: 048
  8. AZUNOL GARGLE LIQUID [Concomitant]
     Indication: STOMATITIS
     Dosage: UNK
     Route: 049
     Dates: start: 20181017
  9. SIROLIMUS. [Suspect]
     Active Substance: SIROLIMUS
     Indication: FIBRODYSPLASIA OSSIFICANS PROGRESSIVA
     Dosage: 1 MG, DAILY
     Route: 048
     Dates: start: 20190201, end: 20190212
  10. DEXALTIN [Concomitant]
     Active Substance: DEXAMETHASONE
     Indication: STOMATITIS
     Dosage: UNK
     Route: 062
     Dates: start: 20180912
  11. TSUMURA RIKKUNSHITO EXTRACT GRANULES FOR ETHICAL USE [Concomitant]
     Active Substance: HERBALS
     Indication: GASTRITIS
     Dosage: 2.5 G, 1X/DAY
     Route: 048

REACTIONS (1)
  - Ileus [Recovered/Resolved]

NARRATIVE: CASE EVENT DATE: 20190212
